FAERS Safety Report 18822264 (Version 1)
Quarter: 2021Q1

REPORT INFORMATION
  Report Type: Report from Study
  Country: CA (occurrence: CA)
  Receive Date: 20210202
  Receipt Date: 20210202
  Transmission Date: 20210419
  Serious: Yes (Other)
  Sender: FDA-Public Use
  Company Number: NVSC2021CA011722

PATIENT
  Sex: Female

DRUGS (1)
  1. BEOVU [Suspect]
     Active Substance: BROLUCIZUMAB-DBLL
     Indication: NEOVASCULAR AGE-RELATED MACULAR DEGENERATION
     Dosage: 6 MG/ 0.05 ML
     Route: 031
     Dates: start: 20210107

REACTIONS (7)
  - Lacrimation increased [Recovering/Resolving]
  - Eye infection [Recovering/Resolving]
  - Swelling of eyelid [Recovering/Resolving]
  - Ocular hyperaemia [Recovering/Resolving]
  - Vision blurred [Recovering/Resolving]
  - Erythema of eyelid [Recovering/Resolving]
  - Eye pain [Recovering/Resolving]
